FAERS Safety Report 25536991 (Version 2)
Quarter: 2025Q3

REPORT INFORMATION
  Report Type: Spontaneous
  Country: US (occurrence: US)
  Receive Date: 20250710
  Receipt Date: 20250720
  Transmission Date: 20251020
  Serious: Yes (Other)
  Sender: AUROBINDO
  Company Number: US-MLMSERVICE-20250620-PI549110-00271-1

PATIENT
  Age: 75 Year
  Sex: Female

DRUGS (3)
  1. PREDNISONE [Interacting]
     Active Substance: PREDNISONE
     Indication: Immune-mediated myositis
     Route: 065
  2. OMEPRAZOLE [Suspect]
     Active Substance: OMEPRAZOLE
     Indication: Product used for unknown indication
     Route: 065
  3. MYCOPHENOLIC ACID [Suspect]
     Active Substance: MYCOPHENOLIC ACID
     Indication: Immune-mediated myositis
     Route: 065

REACTIONS (6)
  - Cushingoid [Recovering/Resolving]
  - Toxicity to various agents [Recovering/Resolving]
  - Food interaction [Recovering/Resolving]
  - Drug interaction [Unknown]
  - Drug ineffective [Unknown]
  - Drug level decreased [Unknown]
